FAERS Safety Report 6571558-1 (Version None)
Quarter: 2010Q1

REPORT INFORMATION
  Report Type: 
  Country: None (occurrence: None)
  Receive Date: 20100205
  Receipt Date: 20100127
  Transmission Date: 20100710
  Serious: Yes (Hospitalization)
  Sender: FDA-Public Use
  Company Number: DE-JNJFOC-20100200341

PATIENT
  Age: 87 Year
  Sex: Female
  Weight: 73 kg

DRUGS (10)
  1. IBUPROFEN [Suspect]
     Indication: BACK PAIN
     Dosage: 20-30 (400MG/TABLET) FILM-COATED TABLETS PER WEEK
     Route: 048
  2. IBUPROFEN [Suspect]
     Dosage: 2 TO 3 (400MG) FILM COATED TABLETS PER WEEK
     Route: 048
  3. ASPIRIN [Suspect]
     Indication: THROMBOSIS PROPHYLAXIS
     Dosage: 100MG  TABLETTEN
  4. VALORON N [Suspect]
     Indication: BACK PAIN
     Dosage: 50MG TILIDINE PHOSPHATE/4 MG NALOXONE HYDROCHLORIDE RETARD TABLETTEN
     Route: 048
  5. PANTOZOL [Concomitant]
     Indication: NAUSEA
  6. SPIROLACTONE [Concomitant]
     Indication: RIGHT VENTRICULAR FAILURE
  7. DIURAPID [Concomitant]
     Indication: HYPERTENSION
  8. LISINOPRIL [Concomitant]
     Indication: HYPERTENSION
  9. THEOPHYLLINE [Concomitant]
     Indication: CHRONIC OBSTRUCTIVE PULMONARY DISEASE
  10. PENTAERYTHRITOL TETRANITRATE [Concomitant]
     Indication: CORONARY ARTERY DISEASE
     Route: 048

REACTIONS (4)
  - DRUG DEPENDENCE [None]
  - GASTRITIS [None]
  - RENAL FAILURE [None]
  - VOMITING [None]
